FAERS Safety Report 6173799-4 (Version None)
Quarter: 2009Q2

REPORT INFORMATION
  Report Type: 
  Country: None (occurrence: None)
  Receive Date: 20090429
  Receipt Date: 20090429
  Transmission Date: 20091009
  Serious: Yes (Disabling)
  Sender: FDA-Public Use
  Company Number: None

PATIENT
  Age: 47 Year
  Sex: Female
  Weight: 81.1939 kg

DRUGS (1)
  1. REGLAN [Suspect]
     Indication: GASTROOESOPHAGEAL REFLUX DISEASE
     Dosage: 3 X DAY
     Dates: start: 20020101, end: 20090101

REACTIONS (3)
  - DYSKINESIA [None]
  - FORMICATION [None]
  - RESTLESSNESS [None]
